FAERS Safety Report 4543678-4 (Version None)
Quarter: 2004Q4

REPORT INFORMATION
  Report Type: 
  Country: None (occurrence: None)
  Receive Date: 20041229
  Receipt Date: 20041229
  Transmission Date: 20050328
  Serious: Yes (Life-Threatening, Hospitalization, Disabling)
  Sender: FDA-Public Use
  Company Number: None

PATIENT
  Sex: Male
  Weight: 86.1834 kg

DRUGS (1)
  1. CELEBREX [Suspect]
     Indication: ARTHRITIS
     Dosage: 100 MG.    2X DAY   ORAL
     Route: 048
     Dates: start: 19991001, end: 20031012

REACTIONS (6)
  - ABASIA [None]
  - BALANCE DISORDER [None]
  - DEAFNESS [None]
  - DIPLOPIA [None]
  - FACIAL PALSY [None]
  - HEADACHE [None]
